FAERS Safety Report 7550905-8 (Version None)
Quarter: 2011Q2

REPORT INFORMATION
  Report Type: 
  Country: None (occurrence: None)
  Receive Date: 20110609
  Receipt Date: 20110601
  Transmission Date: 20111010
  Serious: Yes (Other)
  Sender: FDA-Public Use
  Company Number: 2011S1000281

PATIENT
  Age: 62 Year
  Sex: Female
  Weight: 68 kg

DRUGS (5)
  1. LIVALO [Suspect]
     Indication: BLOOD CHOLESTEROL INCREASED
     Dosage: 2 MG;1X;PO
     Route: 048
     Dates: start: 20110221, end: 20110227
  2. METOPROLOL TARTRATE [Concomitant]
  3. SERTRALINE [Concomitant]
  4. AMLODIPINE W/ BENAZEPRIL [Concomitant]
  5. DESVENLAFAXINE [Concomitant]

REACTIONS (2)
  - ABDOMINAL PAIN UPPER [None]
  - DIARRHOEA [None]
